FAERS Safety Report 18304112 (Version 3)
Quarter: 2020Q4

REPORT INFORMATION
  Report Type: Report from Study
  Country: CO (occurrence: CO)
  Receive Date: 20200923
  Receipt Date: 20201020
  Transmission Date: 20210113
  Serious: Yes (Hospitalization, Other)
  Sender: FDA-Public Use
  Company Number: NVSC2020CO257624

PATIENT
  Age: 75 Year
  Sex: Female
  Weight: 60 kg

DRUGS (5)
  1. ATORVASTATIN [Suspect]
     Active Substance: ATORVASTATIN
     Indication: EFFUSION
     Dosage: UNK, QD
     Route: 048
     Dates: start: 202008
  2. ATORVASTATIN [Suspect]
     Active Substance: ATORVASTATIN
     Indication: MOBILITY DECREASED
  3. REVOLADE [Suspect]
     Active Substance: ELTROMBOPAG
     Dosage: 25 MG, QD (1 YEAR AGO (DOES NOT KNOW THE EXACT DATE))
     Route: 048
     Dates: end: 20200824
  4. REVOLADE [Suspect]
     Active Substance: ELTROMBOPAG
     Indication: IMMUNE THROMBOCYTOPENIA
     Dosage: 25 MG, QD (STARTED APPROXIMATY ONE YEAR AGO)
     Route: 048
     Dates: end: 20200802
  5. PREDNISOLONE. [Concomitant]
     Active Substance: PREDNISOLONE
     Indication: PRODUCT USED FOR UNKNOWN INDICATION
     Dosage: UNK, QD (10MG/2 OF 5 MG)
     Route: 048

REACTIONS (5)
  - Asthenia [Unknown]
  - Mobility decreased [Recovered/Resolved]
  - Effusion [Unknown]
  - Ischaemia [Unknown]
  - Thrombosis [Unknown]

NARRATIVE: CASE EVENT DATE: 20200802
